FAERS Safety Report 6193325-3 (Version None)
Quarter: 2009Q2

REPORT INFORMATION
  Report Type: 
  Country: None (occurrence: None)
  Receive Date: 20090513
  Receipt Date: 20090513
  Transmission Date: 20091009
  Serious: Yes (Disabling, Other)
  Sender: FDA-Public Use
  Company Number: None

PATIENT
  Age: 22 Year
  Sex: Female
  Weight: 68.0396 kg

DRUGS (1)
  1. BUDEPRION XL 150MG TEVA [Suspect]
     Dosage: 150MG ONE TIME PER DAY
     Dates: start: 20090510, end: 20090513

REACTIONS (2)
  - AGITATION [None]
  - TREMOR [None]
